FAERS Safety Report 14473946 (Version 1)
Quarter: 2018Q1

REPORT INFORMATION
  Report Type: Other
  Country: IL (occurrence: IL)
  Receive Date: 20180201
  Receipt Date: 20180201
  Transmission Date: 20180509
  Serious: Yes (Life-Threatening, Hospitalization)
  Sender: FDA-Public Use
  Company Number: IL-NOSTRUM LABORATORIES, INC.-2041205

PATIENT
  Age: 32 Year
  Sex: Female
  Weight: 75 kg

DRUGS (2)
  1. MORPHINE SULFATE. [Suspect]
     Active Substance: MORPHINE SULFATE
     Indication: CAESAREAN SECTION
     Route: 037
  2. BUPIVACAINE. [Concomitant]
     Active Substance: BUPIVACAINE
     Route: 037

REACTIONS (1)
  - Hypothermia [Recovered/Resolved]
